FAERS Safety Report 24794472 (Version 1)
Quarter: 2024Q4

REPORT INFORMATION
  Report Type: Spontaneous
  Country: DE (occurrence: DE)
  Receive Date: 20241231
  Receipt Date: 20241231
  Transmission Date: 20250115
  Serious: Yes (Other)
  Sender: RANBAXY
  Company Number: DE-SUN PHARMACEUTICAL INDUSTRIES LTD-2024RR-487550

PATIENT
  Sex: Male

DRUGS (1)
  1. CEQUA [Suspect]
     Active Substance: CYCLOSPORINE
     Indication: Corneal disorder
     Dosage: UNK

REACTIONS (5)
  - Corneal erosion [Unknown]
  - Corneal oedema [Unknown]
  - Corneal disorder [Unknown]
  - Lacrimation increased [Unknown]
  - Visual impairment [Unknown]
